FAERS Safety Report 7352186-7 (Version None)
Quarter: 2011Q1

REPORT INFORMATION
  Report Type: 
  Country: None (occurrence: None)
  Receive Date: 20110315
  Receipt Date: 20110308
  Transmission Date: 20110831
  Serious: Yes (Hospitalization)
  Sender: FDA-Public Use
  Company Number: US-BAXTER-2011BH004425

PATIENT
  Age: 10 Year
  Sex: Male

DRUGS (3)
  1. ADVATE [Suspect]
     Route: 042
     Dates: start: 20110225, end: 20110228
  2. ADVATE [Suspect]
     Indication: HAEMOPHILIA
     Route: 042
     Dates: start: 20100101, end: 20110224
  3. ADVATE [Suspect]
     Route: 042
     Dates: start: 20110301

REACTIONS (5)
  - DEVICE RELATED INFECTION [None]
  - RHODOCOCCUS INFECTION [None]
  - PYREXIA [None]
  - BACTERAEMIA [None]
  - LUNG DISORDER [None]
